FAERS Safety Report 20246670 (Version 1)
Quarter: 2021Q4

REPORT INFORMATION
  Report Type: Spontaneous
  Country: US (occurrence: None)
  Receive Date: 20211228
  Receipt Date: 20211228
  Transmission Date: 20220303
  Serious: No
  Sender: FDA-Public Use
  Company Number: None

PATIENT
  Age: 18 Year
  Weight: 45 kg

DRUGS (1)
  1. PHEXXI [Suspect]
     Active Substance: CITRIC ACID MONOHYDRATE\LACTIC ACID, L-\POTASSIUM BITARTRATE
     Indication: Contraception
     Dosage: OTHER QUANTITY : 1 GELL INSERT;?FREQUENCY : AS NEEDED;?
     Route: 067
     Dates: start: 20211228

REACTIONS (3)
  - Application site pain [None]
  - Dyspareunia [None]
  - Feeling abnormal [None]

NARRATIVE: CASE EVENT DATE: 20211228
